FAERS Safety Report 5031056-3 (Version None)
Quarter: 2006Q2

REPORT INFORMATION
  Report Type: 
  Country: None (occurrence: None)
  Receive Date: 20060619
  Receipt Date: 20060619
  Transmission Date: 20061013
  Serious: Yes (Other)
  Sender: FDA-Public Use
  Company Number: None

PATIENT
  Sex: Female
  Weight: 68.0396 kg

DRUGS (11)
  1. LUNESTA [Suspect]
     Indication: INSOMNIA
     Dosage: 3 MG Q HS PO
     Route: 048
     Dates: start: 20060506, end: 20060510
  2. WELLBUTRIN [Concomitant]
  3. SYNTHROID [Concomitant]
  4. REMERON [Concomitant]
  5. MELOXICAM [Concomitant]
  6. URXOFOL [Concomitant]
  7. EXTRADIOL [Concomitant]
  8. LORATADINE [Concomitant]
  9. NEURONTIN [Concomitant]
  10. GLUCOPHAGE [Concomitant]
  11. LAMICTAL [Concomitant]

REACTIONS (3)
  - ABNORMAL SLEEP-RELATED EVENT [None]
  - CONTUSION [None]
  - NIGHTMARE [None]
